FAERS Safety Report 8429085-2 (Version None)
Quarter: 2012Q2

REPORT INFORMATION
  Report Type: 
  Country: None (occurrence: None)
  Receive Date: 20120605
  Receipt Date: 20120523
  Transmission Date: 20120825
  Serious: Yes (Other)
  Sender: FDA-Public Use
  Company Number: 2010MA002620

PATIENT
  Sex: Female
  Weight: 61.2356 kg

DRUGS (22)
  1. ACETAMINOPHEN W/ CODEINE [Concomitant]
  2. MILK OF MAGNESIA TAB [Concomitant]
  3. ZELNORM [Concomitant]
  4. ZITHROMAX [Concomitant]
  5. TRIAMTERENE AND HYDROCHLOROTHIAZIDE [Concomitant]
  6. METOCLOPRAMIDE [Suspect]
     Indication: ULCER
     Dosage: 10 MG; 1 TAB TAB AC + HS; PO
     Route: 048
     Dates: start: 20051004, end: 20091210
  7. METOCLOPRAMIDE [Suspect]
     Indication: GASTROOESOPHAGEAL REFLUX DISEASE
     Dosage: 10 MG; 1 TAB TAB AC + HS; PO
     Route: 048
     Dates: start: 20051004, end: 20091210
  8. PREVACID [Concomitant]
  9. CARISOPRODOL [Concomitant]
  10. KAPIDEX [Concomitant]
  11. AMOXICILLIN [Concomitant]
  12. PROTONIX [Concomitant]
  13. DIAZEPAM [Concomitant]
  14. COUGH MEDICATION [Concomitant]
  15. FALBEE [Concomitant]
  16. AMBIEN [Concomitant]
  17. MAGNESIUM HYDROXIDE TAB [Concomitant]
  18. PHENTERMINE [Concomitant]
  19. BEXTRA [Concomitant]
  20. HYDROCODONE BITARTRATE AND ACETAMINOPHEN [Concomitant]
  21. SIMETHICONE [Concomitant]
  22. SYNMAX DUOTAB [Concomitant]

REACTIONS (21)
  - UPPER RESPIRATORY TRACT INFECTION [None]
  - TREMOR [None]
  - EMOTIONAL DISORDER [None]
  - DYSGRAPHIA [None]
  - EYE DISORDER [None]
  - IRRITABLE BOWEL SYNDROME [None]
  - MUSCLE SPASMS [None]
  - ECONOMIC PROBLEM [None]
  - GASTRITIS EROSIVE [None]
  - DISTURBANCE IN ATTENTION [None]
  - TARDIVE DYSKINESIA [None]
  - RASH [None]
  - PHARYNGITIS [None]
  - BRONCHITIS [None]
  - DISEASE RECURRENCE [None]
  - EXTRAPYRAMIDAL DISORDER [None]
  - GASTRIC ULCER [None]
  - MIDDLE INSOMNIA [None]
  - COGWHEEL RIGIDITY [None]
  - MUSCLE RIGIDITY [None]
  - GASTROOESOPHAGEAL REFLUX DISEASE [None]
